FAERS Safety Report 11332350 (Version 1)
Quarter: 2015Q3

REPORT INFORMATION
  Report Type: Spontaneous
  Country: US (occurrence: US)
  Receive Date: 20150803
  Receipt Date: 20150803
  Transmission Date: 20151125
  Serious: Yes (Other)
  Sender: FDA-Public Use
  Company Number: US-ELI_LILLY_AND_COMPANY-US200808006065

PATIENT
  Age: 26 Year
  Sex: Male

DRUGS (2)
  1. ZYPREXA [Suspect]
     Active Substance: OLANZAPINE
     Indication: BIPOLAR I DISORDER
     Dosage: 20 MG, UNK
     Dates: start: 200807, end: 200807
  2. HALDOL [Concomitant]
     Active Substance: HALOPERIDOL
     Dosage: UNK, UNK
     Dates: start: 200807

REACTIONS (2)
  - Hypersensitivity [Unknown]
  - Dystonia [Unknown]

NARRATIVE: CASE EVENT DATE: 200807
